FAERS Safety Report 24713389 (Version 1)
Quarter: 2024Q4

REPORT INFORMATION
  Report Type: Spontaneous
  Country: US (occurrence: US)
  Receive Date: 20241209
  Receipt Date: 20241209
  Transmission Date: 20250115
  Serious: Yes (Other)
  Sender: REGENERON
  Company Number: US-REGENERON PHARMACEUTICALS, INC.-2024-036147

PATIENT
  Age: 73 Year
  Sex: Male

DRUGS (2)
  1. EYLEA [Suspect]
     Active Substance: AFLIBERCEPT
     Indication: Age-related macular degeneration
     Dosage: UNK, EVERY 4 WEEKS (Q4W), RIGHT EYE, FORMULATION: UNKNOWN
     Route: 031
  2. EYLEA [Suspect]
     Active Substance: AFLIBERCEPT
     Dosage: UNK, EVERY 4 WEEKS (Q4W), RIGHT EYE, FORMULATION: UNKNOWN
     Route: 031

REACTIONS (5)
  - Embolic stroke [Unknown]
  - Cataract [Unknown]
  - Visual acuity reduced [Unknown]
  - Visual field defect [Unknown]
  - Therapeutic response decreased [Unknown]
